FAERS Safety Report 7576478-1 (Version None)
Quarter: 2011Q2

REPORT INFORMATION
  Report Type: 
  Country: None (occurrence: None)
  Receive Date: 20110628
  Receipt Date: 20090817
  Transmission Date: 20111010
  Serious: Yes (Death, Other)
  Sender: FDA-Public Use
  Company Number: US-BAYER-200929798NA

PATIENT
  Age: 62 Year
  Sex: Male
  Weight: 59 kg

DRUGS (20)
  1. TRASYLOL [Suspect]
     Dosage: 50 ML/HOUR INFUSION
     Route: 042
     Dates: start: 20000426, end: 20000426
  2. APRESOLINE [Concomitant]
     Dosage: 100 MG, QID
     Route: 048
     Dates: start: 20000221
  3. HEPARIN [Concomitant]
     Dosage: 50 U, UNK
     Route: 042
     Dates: start: 20000226, end: 20000226
  4. INSULIN [Concomitant]
     Dosage: 20 U, UNK
     Route: 042
  5. TRASYLOL [Suspect]
     Indication: CORONARY ARTERY BYPASS
     Dosage: 200 ML PUMP PRIME DOSE
     Route: 042
     Dates: start: 20000426, end: 20000426
  6. TRASYLOL [Suspect]
     Dosage: 200 ML LOADING DOSE
     Route: 042
     Dates: start: 20000426, end: 20000426
  7. ISORDIL [Concomitant]
     Dosage: 30 MG, TID
     Route: 048
     Dates: start: 20000221
  8. LOPRESSOR [Concomitant]
     Dosage: 50 MG, BID
     Route: 048
     Dates: start: 20000221
  9. PROTAMINE SULFATE [Concomitant]
     Dosage: 500 MG, UNK
     Route: 042
     Dates: start: 20000226, end: 20000226
  10. PRILOSEC [Concomitant]
     Dosage: 20 MG, BID
  11. LASIX [Concomitant]
     Dosage: 60 MG, TID
     Route: 048
     Dates: start: 20000221
  12. COUMADIN [Concomitant]
     Route: 048
  13. ZOCOR [Concomitant]
     Dosage: 40 MG, HS
     Route: 048
     Dates: start: 20000221
  14. HYDROCHLOROTHIAZIDE [Concomitant]
     Dosage: UNK
     Route: 048
     Dates: start: 19990101
  15. VERSED [Concomitant]
     Dosage: 20 MG, UNK
     Route: 042
     Dates: start: 20000226, end: 20000226
  16. PLATELETS [Concomitant]
     Dosage: 2 U, UNK
     Route: 042
  17. EPINEPHRINE [Concomitant]
     Dosage: 0.2 MG/KG/MIN
     Route: 042
     Dates: start: 20000226, end: 20000226
  18. NITROGLYCERIN [Concomitant]
     Dosage: 5 MCG/KG/MIN
     Route: 042
     Dates: start: 20000226, end: 20000226
  19. RED BLOOD CELLS [Concomitant]
     Dosage: 5 U, UNK
     Route: 042
  20. FENTANYL [Concomitant]
     Dosage: 500 MCG
     Route: 042
     Dates: start: 20000226, end: 20000226

REACTIONS (4)
  - PAIN [None]
  - DEATH [None]
  - RENAL FAILURE [None]
  - INJURY [None]
